FAERS Safety Report 25551767 (Version 1)
Quarter: 2025Q3

REPORT INFORMATION
  Report Type: Spontaneous
  Country: US (occurrence: US)
  Receive Date: 20250714
  Receipt Date: 20250714
  Transmission Date: 20251020
  Serious: Yes (Hospitalization, Other)
  Sender: PURDUE
  Company Number: US-PURDUE PHARMA-USA-2025-0318826

PATIENT
  Age: 29 Year
  Sex: Female

DRUGS (4)
  1. OXYCODONE HYDROCHLORIDE [Suspect]
     Active Substance: OXYCODONE HYDROCHLORIDE
     Indication: Product used for unknown indication
     Route: 048
  2. DEXTROAMPHETAMINE SACCHARATE, AMPHETAMINE ASPARTATE, DEXTROAMPHETAMINE [Suspect]
     Active Substance: AMPHETAMINE ASPARTATE\AMPHETAMINE SULFATE\DEXTROAMPHETAMINE SACCHARATE\DEXTROAMPHETAMINE SULFATE
     Indication: Product used for unknown indication
     Route: 048
  3. METHAMPHETAMINE [Suspect]
     Active Substance: METHAMPHETAMINE
     Indication: Product used for unknown indication
     Route: 048
  4. ALPRAZOLAM [Suspect]
     Active Substance: ALPRAZOLAM
     Indication: Product used for unknown indication
     Route: 048

REACTIONS (23)
  - Borderline personality disorder [Unknown]
  - Intellectual disability [Unknown]
  - Substance-induced psychotic disorder [Unknown]
  - Hallucination, auditory [Recovered/Resolved]
  - Suicidal ideation [Recovered/Resolved]
  - Substance use disorder [Unknown]
  - Drug use disorder [Unknown]
  - Drug dependence [Unknown]
  - Anxiety [Unknown]
  - Nausea [Unknown]
  - Toxicity to various agents [Unknown]
  - Victim of sexual abuse [Unknown]
  - Psychomotor hyperactivity [Unknown]
  - Disorientation [Unknown]
  - Anaemia [Unknown]
  - Leukocytosis [Unknown]
  - Drug screen positive [Unknown]
  - Dysarthria [Unknown]
  - Thinking abnormal [Unknown]
  - Disturbance in attention [Unknown]
  - Irritability [Unknown]
  - Maternal exposure during pregnancy [Unknown]
  - Drug withdrawal syndrome [Unknown]
